FAERS Safety Report 17843087 (Version 1)
Quarter: 2020Q2

REPORT INFORMATION
  Report Type: Spontaneous
  Country: IT (occurrence: IT)
  Receive Date: 20200530
  Receipt Date: 20200530
  Transmission Date: 20200714
  Serious: Yes (Other)
  Sender: FDA-Public Use
  Company Number: IT-SAMSUNG BIOEPIS-SB-2020-17335

PATIENT
  Age: 58 Year
  Sex: Female
  Weight: 50 kg

DRUGS (1)
  1. BENEPALI [Suspect]
     Active Substance: ETANERCEPT
     Indication: ANKYLOSING SPONDYLITIS
     Route: 058
     Dates: start: 20180116, end: 20191206

REACTIONS (4)
  - Abdominal discomfort [Not Recovered/Not Resolved]
  - Abdominal pain [Not Recovered/Not Resolved]
  - Enterocolitis [Unknown]
  - Tenderness [Unknown]

NARRATIVE: CASE EVENT DATE: 201911
